FAERS Safety Report 17419430 (Version 1)
Quarter: 2020Q1

REPORT INFORMATION
  Report Type: Spontaneous
  Country: US (occurrence: US)
  Receive Date: 20200214
  Receipt Date: 20200214
  Transmission Date: 20200409
  Serious: No
  Sender: FDA-Public Use
  Company Number: US-GLAXOSMITHKLINE-US2020AMR023316

PATIENT
  Sex: Male

DRUGS (3)
  1. VARUBI [Suspect]
     Active Substance: ROLAPITANT
     Dosage: UNK UNK, Z (EVERY OTHER WEEK)
  2. VARUBI [Suspect]
     Active Substance: ROLAPITANT
     Indication: PRODUCT USED FOR UNKNOWN INDICATION
     Dosage: 180 MG, Z (EVERY 3 WEEKS)
     Dates: start: 20200113
  3. CISPLATIN. [Suspect]
     Active Substance: CISPLATIN
     Indication: PRODUCT USED FOR UNKNOWN INDICATION
     Dosage: UNK

REACTIONS (2)
  - Inappropriate schedule of product administration [Unknown]
  - Adverse drug reaction [Unknown]
